FAERS Safety Report 16897743 (Version 2)
Quarter: 2019Q4

REPORT INFORMATION
  Report Type: Other
  Country: GB (occurrence: GB)
  Receive Date: 20191009
  Receipt Date: 20191210
  Transmission Date: 20200122
  Serious: Yes (Other)
  Sender: FDA-Public Use
  Company Number: GB-LUPIN PHARMACEUTICALS INC.-2019-06365

PATIENT
  Age: 20 Year
  Sex: Female
  Weight: 83 kg

DRUGS (1)
  1. SERTRALINE [Suspect]
     Active Substance: SERTRALINE HYDROCHLORIDE
     Indication: PRODUCT USED FOR UNKNOWN INDICATION
     Dosage: 100 MILLIGRAM, UNK
     Route: 065
     Dates: start: 20190801

REACTIONS (4)
  - Panic attack [Recovered/Resolved with Sequelae]
  - Condition aggravated [Unknown]
  - Self-injurious ideation [Unknown]
  - Depression [Unknown]

NARRATIVE: CASE EVENT DATE: 20190801
